FAERS Safety Report 13449249 (Version 1)
Quarter: 2017Q2

REPORT INFORMATION
  Report Type: Spontaneous
  Country: CA (occurrence: CA)
  Receive Date: 20170417
  Receipt Date: 20170417
  Transmission Date: 20170830
  Serious: Yes (Other)
  Sender: FDA-Public Use
  Company Number: CA-PFIZER INC-2017163376

PATIENT
  Age: 67 Year
  Sex: Male

DRUGS (5)
  1. CORTEF [Suspect]
     Active Substance: HYDROCORTISONE
     Dosage: 15 MG, UNK
  2. CORTEF [Suspect]
     Active Substance: HYDROCORTISONE
     Dosage: 300MG TO 3000MG IN 2 DAYS
  3. CORTEF [Suspect]
     Active Substance: HYDROCORTISONE
     Dosage: 500 MG, 3X/DAY
  4. CORTEF [Suspect]
     Active Substance: HYDROCORTISONE
     Dosage: 30 MG, UNK
  5. CORTEF [Suspect]
     Active Substance: HYDROCORTISONE
     Dosage: 50-50-50

REACTIONS (3)
  - Tinnitus [Unknown]
  - Brain neoplasm [Recovered/Resolved]
  - Overdose [Unknown]
